FAERS Safety Report 7550988-5 (Version None)
Quarter: 2011Q2

REPORT INFORMATION
  Report Type: 
  Country: None (occurrence: None)
  Receive Date: 20110609
  Receipt Date: 20110526
  Transmission Date: 20111010
  Serious: Yes (Hospitalization)
  Sender: FDA-Public Use
  Company Number: JPI-P-015250

PATIENT
  Age: 37 Year
  Sex: Female

DRUGS (1)
  1. XYREM [Suspect]
     Indication: INTENTIONAL DRUG MISUSE
     Dosage: ORAL
     Route: 048
     Dates: start: 20110101

REACTIONS (5)
  - CONVULSION [None]
  - COMA [None]
  - INCOHERENT [None]
  - ABNORMAL BEHAVIOUR [None]
  - VICTIM OF CRIME [None]
